FAERS Safety Report 7083576-8 (Version None)
Quarter: 2010Q4

REPORT INFORMATION
  Report Type: 
  Country: None (occurrence: None)
  Receive Date: 20101103
  Receipt Date: 20101103
  Transmission Date: 20110411
  Serious: No
  Sender: FDA-Public Use
  Company Number: None

PATIENT
  Sex: Female
  Weight: 65.318 kg

DRUGS (2)
  1. TRI-LEGEST [Suspect]
     Indication: MENSTRUATION IRREGULAR
  2. TILIA [Suspect]

REACTIONS (3)
  - CHLOASMA [None]
  - DEPRESSION [None]
  - PRODUCT SUBSTITUTION ISSUE [None]
